FAERS Safety Report 7973494-2 (Version None)
Quarter: 2011Q4

REPORT INFORMATION
  Report Type: 
  Country: None (occurrence: None)
  Receive Date: 20111213
  Receipt Date: 20111205
  Transmission Date: 20120403
  Serious: Yes (Hospitalization)
  Sender: FDA-Public Use
  Company Number: ZA-ABBOTT-11P-143-0880813-00

PATIENT
  Age: 7 Year
  Sex: Male

DRUGS (2)
  1. VALPROIC ACID [Suspect]
     Indication: PRODUCT USED FOR UNKNOWN INDICATION
     Route: 048
  2. VALPROIC ACID [Suspect]
     Route: 048

REACTIONS (2)
  - CONVULSION [None]
  - DRUG LEVEL ABOVE THERAPEUTIC [None]
